FAERS Safety Report 8444030-1 (Version None)
Quarter: 2012Q2

REPORT INFORMATION
  Report Type: 
  Country: None (occurrence: None)
  Receive Date: 20120618
  Receipt Date: 20120612
  Transmission Date: 20120825
  Serious: Yes (Other)
  Sender: FDA-Public Use
  Company Number: PHHY2012DE050839

PATIENT
  Age: 65 Year
  Sex: Male

DRUGS (1)
  1. ZOMETA [Suspect]
     Dosage: 1 DF, QMO
     Route: 042
     Dates: start: 20110401

REACTIONS (1)
  - OSTEONECROSIS OF JAW [None]
